FAERS Safety Report 5935499-2 (Version None)
Quarter: 2008Q4

REPORT INFORMATION
  Report Type: 
  Country: None (occurrence: None)
  Receive Date: 20081030
  Receipt Date: 20081017
  Transmission Date: 20090506
  Serious: Yes (Death, Hospitalization)
  Sender: FDA-Public Use
  Company Number: US-SANOFI-SYNTHELABO-A03200803968

PATIENT
  Age: 64 Year
  Sex: Female

DRUGS (6)
  1. PLAQUENIL [Suspect]
     Indication: DRUG USE FOR UNKNOWN INDICATION
     Dosage: 200 MG
     Route: 048
  2. EZETIMIBE/SIMVASTATIN [Concomitant]
     Indication: DRUG USE FOR UNKNOWN INDICATION
     Dosage: UNK
     Route: 065
  3. DILTIAZEM HCL [Concomitant]
     Indication: DRUG USE FOR UNKNOWN INDICATION
     Dosage: UNK
     Route: 065
  4. RALOXIFENE HCL [Concomitant]
     Indication: DRUG USE FOR UNKNOWN INDICATION
     Dosage: UNK
     Route: 065
  5. LISINOPRIL [Concomitant]
     Indication: DRUG USE FOR UNKNOWN INDICATION
     Dosage: UNK
     Route: 065
  6. PREDNISONE TAB [Suspect]
     Indication: MYOSITIS
     Dosage: UNK
     Route: 065

REACTIONS (8)
  - ASTHENIA [None]
  - DYSPHAGIA [None]
  - DYSPHONIA [None]
  - DYSPNOEA EXERTIONAL [None]
  - LUNG INFECTION [None]
  - MUSCULAR WEAKNESS [None]
  - MYOPATHY [None]
  - RESPIRATORY FAILURE [None]
